FAERS Safety Report 23718922 (Version 1)
Quarter: 2024Q2

REPORT INFORMATION
  Report Type: Other
  Country: AU (occurrence: AU)
  Receive Date: 20240408
  Receipt Date: 20240408
  Transmission Date: 20240716
  Serious: Yes (Death, Other)
  Sender: FDA-Public Use
  Company Number: AU-LUPIN PHARMACEUTICALS INC.-2024-02886

PATIENT

DRUGS (1)
  1. DESVENLAFAXINE [Suspect]
     Active Substance: DESVENLAFAXINE
     Indication: Product used for unknown indication
     Dosage: UNK
     Route: 065

REACTIONS (3)
  - Completed suicide [Fatal]
  - Abnormal behaviour [Unknown]
  - Anger [Unknown]
